FAERS Safety Report 15392755 (Version 2)
Quarter: 2018Q4

REPORT INFORMATION
  Report Type: Spontaneous
  Country: FR (occurrence: FR)
  Receive Date: 20180917
  Receipt Date: 20181026
  Transmission Date: 20190204
  Serious: Yes (Hospitalization, Other)
  Sender: FDA-Public Use
  Company Number: FR-MYLANLABS-2018M1067969

PATIENT
  Age: 62 Year
  Sex: Female

DRUGS (3)
  1. FONDAPARINUX [Suspect]
     Active Substance: FONDAPARINUX
     Indication: THROMBOPHLEBITIS SUPERFICIAL
     Dosage: 2.5 MG, QD
     Route: 058
     Dates: start: 20180814, end: 20180824
  2. VALSARTAN. [Concomitant]
     Active Substance: VALSARTAN
     Indication: PRODUCT USED FOR UNKNOWN INDICATION
     Dosage: UNK
  3. URAPIDIL [Concomitant]
     Active Substance: URAPIDIL
     Indication: PRODUCT USED FOR UNKNOWN INDICATION
     Dosage: UNK

REACTIONS (3)
  - Spinal epidural haematoma [Recovering/Resolving]
  - Spinal cord compression [Recovering/Resolving]
  - Paralysis [Recovering/Resolving]

NARRATIVE: CASE EVENT DATE: 20180822
